FAERS Safety Report 13463796 (Version 1)
Quarter: 2017Q2

REPORT INFORMATION
  Report Type: Spontaneous
  Country: US (occurrence: US)
  Receive Date: 20170420
  Receipt Date: 20170420
  Transmission Date: 20170830
  Serious: Yes (Hospitalization, Other)
  Sender: FDA-Public Use
  Company Number: US-ROCHE-702750

PATIENT
  Sex: Male
  Weight: 58.1 kg

DRUGS (3)
  1. ACCUTANE [Suspect]
     Active Substance: ISOTRETINOIN
     Route: 048
  2. ACCUTANE [Suspect]
     Active Substance: ISOTRETINOIN
     Indication: ACNE
     Dosage: FORM: PILL
     Route: 048
     Dates: start: 20040804, end: 200409
  3. ACCUTANE [Suspect]
     Active Substance: ISOTRETINOIN
     Dosage: LOW DOSE
     Route: 048
     Dates: start: 200410, end: 200412

REACTIONS (3)
  - Crohn^s disease [Unknown]
  - Inflammatory bowel disease [Unknown]
  - Depression [Not Recovered/Not Resolved]

NARRATIVE: CASE EVENT DATE: 2008
